FAERS Safety Report 4712441-3 (Version None)
Quarter: 2005Q3

REPORT INFORMATION
  Report Type: 
  Country: None (occurrence: None)
  Receive Date: 20050711
  Receipt Date: 20050628
  Transmission Date: 20060218
  Serious: Yes (Other)
  Sender: FDA-Public Use
  Company Number: 2005093605

PATIENT
  Age: 48 Year
  Sex: Female
  Weight: 58.9676 kg

DRUGS (1)
  1. UNISOM [Suspect]
     Indication: ACCIDENTAL OVERDOSE
     Dosage: 6 TABS ONCE ORAL
     Route: 048
     Dates: start: 20050628, end: 20050628

REACTIONS (2)
  - ACCIDENTAL OVERDOSE [None]
  - SOMNOLENCE [None]
